FAERS Safety Report 15492353 (Version 1)
Quarter: 2018Q4

REPORT INFORMATION
  Report Type: Spontaneous
  Country: CA (occurrence: CA)
  Receive Date: 20181012
  Receipt Date: 20181012
  Transmission Date: 20190205
  Serious: Yes (Other)
  Sender: FDA-Public Use
  Company Number: CA-PAN-2018-000540

PATIENT
  Age: 37 Year
  Sex: Male

DRUGS (4)
  1. TACROLIMUS. [Suspect]
     Active Substance: TACROLIMUS
     Indication: RENAL TRANSPLANT
     Dates: start: 2007
  2. DARBEPOETIN [Concomitant]
     Active Substance: DARBEPOETIN ALFA
  3. RIBAVIRIN. [Suspect]
     Active Substance: RIBAVIRIN
     Dates: start: 201505
  4. SOFOSBUVIR [Concomitant]
     Active Substance: SOFOSBUVIR
     Dates: start: 201505

REACTIONS (2)
  - Drug level decreased [Recovered/Resolved]
  - Renal transplant failure [Unknown]
